FAERS Safety Report 7096835-X (Version None)
Quarter: 2010Q4

REPORT INFORMATION
  Report Type: 
  Country: None (occurrence: None)
  Receive Date: 20101111
  Receipt Date: 20101101
  Transmission Date: 20110411
  Serious: Yes (Other)
  Sender: FDA-Public Use
  Company Number: US-AMGEN-QUU406996

PATIENT

DRUGS (13)
  1. NPLATE [Suspect]
     Indication: IDIOPATHIC THROMBOCYTOPENIC PURPURA
     Dosage: 4 A?G/KG, UNK
     Dates: start: 20090603, end: 20100114
  2. NPLATE [Suspect]
     Dosage: 4 A?G/KG, UNK
     Dates: start: 20090603, end: 20100114
  3. NPLATE [Suspect]
     Dosage: 4 A?G/KG, UNK
     Dates: start: 20090603, end: 20100114
  4. NPLATE [Suspect]
     Dosage: 4 A?G/KG, UNK
     Dates: start: 20090603, end: 20100114
  5. NPLATE [Suspect]
     Dosage: 4 A?G/KG, UNK
     Dates: start: 20090603, end: 20100114
  6. NPLATE [Suspect]
     Dosage: 4 A?G/KG, UNK
     Dates: start: 20090603, end: 20100114
  7. NPLATE [Suspect]
     Dosage: 4 A?G/KG, UNK
     Dates: start: 20090603, end: 20100114
  8. NPLATE [Suspect]
     Dosage: 4 A?G/KG, UNK
     Dates: start: 20090603, end: 20100114
  9. NPLATE [Suspect]
     Dosage: 4 A?G/KG, UNK
     Dates: start: 20090603, end: 20100114
  10. NPLATE [Suspect]
     Dates: start: 20090603, end: 20100114
  11. IMMU-G [Concomitant]
     Dosage: UNK UNK, UNK
     Dates: start: 20090420
  12. RITUXIMAB [Concomitant]
     Dosage: UNK UNK, UNK
     Dates: start: 20090420
  13. ALEMTUZUMAB [Concomitant]
     Dosage: UNK UNK, UNK
     Dates: start: 20040601

REACTIONS (2)
  - PLATELET COUNT DECREASED [None]
  - THERAPEUTIC RESPONSE DECREASED [None]
